FAERS Safety Report 4915875-7 (Version None)
Quarter: 2006Q1

REPORT INFORMATION
  Report Type: 
  Country: None (occurrence: None)
  Receive Date: 20060214
  Receipt Date: 20060123
  Transmission Date: 20060701
  Serious: No
  Sender: FDA-Public Use
  Company Number: US_0508120870

PATIENT
  Age: 37 Year
  Sex: Male
  Weight: 131.1 kg

DRUGS (6)
  1. ZYPREXA [Suspect]
     Indication: DELUSION
     Dosage: 10 MG, DAILY (1/D), ORAL
     Route: 048
     Dates: start: 20021205
  2. ARIPIPRAZOLE (ARIPIPRAZOLE) [Concomitant]
  3. LUVOX [Concomitant]
  4. ZIAC [Concomitant]
  5. LIPITOR [Concomitant]
  6. LORAZEPAM [Concomitant]

REACTIONS (4)
  - BLOOD CHOLESTEROL INCREASED [None]
  - DIABETES MELLITUS [None]
  - HYPERTENSION [None]
  - OBESITY [None]
